FAERS Safety Report 9614573 (Version 6)
Quarter: 2014Q3

REPORT INFORMATION
  Report Type: Report from Study
  Country: LB (occurrence: LB)
  Receive Date: 20131011
  Receipt Date: 20140929
  Transmission Date: 20150326
  Serious: No
  Sender: FDA-Public Use
  Company Number: PHHY2013LB113597

PATIENT
  Age: 50 Year
  Sex: Male

DRUGS (4)
  1. ZYLORIC [Concomitant]
     Active Substance: ALLOPURINOL
     Dosage: 1 DF, PER DAY
     Route: 048
     Dates: start: 201307
  2. GASTRIMUT [Concomitant]
     Active Substance: OMEPRAZOLE
     Dosage: 1 DF, PER DAY
     Route: 048
     Dates: start: 201307
  3. FOLIC ACID. [Concomitant]
     Active Substance: FOLIC ACID
     Dosage: 1 DF, PER DAY
     Route: 048
     Dates: start: 201307
  4. TASIGNA [Suspect]
     Active Substance: NILOTINIB
     Dosage: 600 MG, PER DAY
     Route: 048
     Dates: start: 201307

REACTIONS (6)
  - Constipation [Recovered/Resolved]
  - Ocular hyperaemia [Recovering/Resolving]
  - Diarrhoea [Recovered/Resolved]
  - Granuloma skin [Recovering/Resolving]
  - Rash [Recovering/Resolving]
  - Influenza [Not Recovered/Not Resolved]

NARRATIVE: CASE EVENT DATE: 201309
